FAERS Safety Report 22211485 (Version 1)
Quarter: 2023Q2

REPORT INFORMATION
  Report Type: Other
  Country: None (occurrence: PL)
  Receive Date: 20230414
  Receipt Date: 20230414
  Transmission Date: 20230721
  Serious: Yes (Life-Threatening)
  Sender: FDA-Public Use
  Company Number: PL-B.Braun Medical Inc.-2140334

PATIENT
  Age: 35 Year
  Sex: Female

DRUGS (3)
  1. MAGNESIUM SULFATE IN DEXTROSE [Suspect]
     Active Substance: MAGNESIUM SULFATE
     Indication: Premature delivery
  2. BETAMETHASONE [Suspect]
     Active Substance: BETAMETHASONE
  3. PROGESTERONE [Suspect]
     Active Substance: PROGESTERONE

REACTIONS (1)
  - Drug ineffective [Unknown]
